FAERS Safety Report 12749903 (Version 2)
Quarter: 2017Q2

REPORT INFORMATION
  Report Type: Spontaneous
  Country: US (occurrence: US)
  Receive Date: 20160916
  Receipt Date: 20170411
  Transmission Date: 20170830
  Serious: Yes (Other)
  Sender: FDA-Public Use
  Company Number: US-TEVA-691988ACC

PATIENT
  Sex: Female
  Weight: 58.11 kg

DRUGS (2)
  1. PARAGARD T 380A [Suspect]
     Active Substance: COPPER
     Indication: CONTRACEPTION
     Dates: start: 20160629, end: 20160810
  2. PARAGARD T 380A [Suspect]
     Active Substance: COPPER
     Dates: start: 20160810

REACTIONS (3)
  - Device dislocation [Recovered/Resolved]
  - Vaginal discharge [Not Recovered/Not Resolved]
  - Muscle spasms [Not Recovered/Not Resolved]
